FAERS Safety Report 17616619 (Version 1)
Quarter: 2020Q2

REPORT INFORMATION
  Report Type: Spontaneous
  Country: US (occurrence: US)
  Receive Date: 20200402
  Receipt Date: 20200402
  Transmission Date: 20200713
  Serious: Yes (Other)
  Sender: FDA-Public Use
  Company Number: US-ASTRAZENECA-2020SE44568

PATIENT
  Age: 919 Month
  Sex: Female
  Weight: 54 kg

DRUGS (2)
  1. MYRBETRIQ [Concomitant]
     Active Substance: MIRABEGRON
     Indication: BLADDER DISORDER
  2. DALIRESP [Suspect]
     Active Substance: ROFLUMILAST
     Indication: CHRONIC OBSTRUCTIVE PULMONARY DISEASE
     Route: 048
     Dates: start: 2018

REACTIONS (2)
  - Volvulus [Unknown]
  - Weight decreased [Unknown]

NARRATIVE: CASE EVENT DATE: 201907
